FAERS Safety Report 25377630 (Version 1)
Quarter: 2025Q2

REPORT INFORMATION
  Report Type: Spontaneous
  Country: US (occurrence: US)
  Receive Date: 20250530
  Receipt Date: 20250530
  Transmission Date: 20250716
  Serious: No
  Sender: GLAXOSMITHKLINE
  Company Number: US-GSK-US2025AMR065278

PATIENT

DRUGS (4)
  1. NUCALA [Suspect]
     Active Substance: MEPOLIZUMAB
     Indication: Rhinitis allergic
  2. NUCALA [Suspect]
     Active Substance: MEPOLIZUMAB
     Indication: Rash
  3. NUCALA [Suspect]
     Active Substance: MEPOLIZUMAB
     Indication: Rash
  4. NUCALA [Suspect]
     Active Substance: MEPOLIZUMAB
     Indication: Upper respiratory tract infection

REACTIONS (1)
  - Off label use [Unknown]
